FAERS Safety Report 14773276 (Version 1)
Quarter: 2018Q2

REPORT INFORMATION
  Report Type: Spontaneous
  Country: US (occurrence: US)
  Receive Date: 20180411
  Receipt Date: 20180411
  Transmission Date: 20180711
  Serious: Yes (Hospitalization)
  Sender: FDA-Public Use
  Company Number: None

PATIENT
  Age: 8 Year
  Sex: Female
  Weight: 34.65 kg

DRUGS (1)
  1. POLYETH GLYCOL 3350 NF POWDER 527GM [Suspect]
     Active Substance: POLYETHYLENE GLYCOL 3350
     Indication: CONSTIPATION
     Dosage: ?          QUANTITY:17 G GRAM(S);?
     Route: 048
     Dates: start: 20160705, end: 20180409

REACTIONS (4)
  - Blood potassium decreased [None]
  - Blood sodium decreased [None]
  - Malaise [None]
  - Functional gastrointestinal disorder [None]

NARRATIVE: CASE EVENT DATE: 20180308
